FAERS Safety Report 18632733 (Version 1)
Quarter: 2020Q4

REPORT INFORMATION
  Report Type: Spontaneous
  Country: JP (occurrence: JP)
  Receive Date: 20201218
  Receipt Date: 20201218
  Transmission Date: 20210114
  Serious: Yes (Hospitalization, Other)
  Sender: FDA-Public Use
  Company Number: JP-SCIEGEN-2020SCILIT00490

PATIENT
  Age: 6 Year
  Sex: Female

DRUGS (12)
  1. PERAMPANEL [Suspect]
     Active Substance: PERAMPANEL
     Indication: EPILEPSY
     Dosage: 0.15 MG/KG/DAY
     Route: 048
  2. LACOSAMIDE. [Suspect]
     Active Substance: LACOSAMIDE
     Indication: EPILEPSY
     Dosage: 8 MG/KG/DAY
     Route: 048
  3. PHENYTOIN. [Suspect]
     Active Substance: PHENYTOIN
     Indication: EPILEPSY
     Dosage: 3 MG/KG/DAY
     Route: 048
  4. CLONAZEPAM. [Suspect]
     Active Substance: CLONAZEPAM
     Indication: EPILEPSY
     Dosage: 0.1 MG/KG/DAY
     Route: 048
  5. POTASSIUM BROMIDE [Suspect]
     Active Substance: POTASSIUM BROMIDE
     Indication: EPILEPSY
     Dosage: 35 MG/KG/DAY
     Route: 048
  6. MIDAZOLAM. [Suspect]
     Active Substance: MIDAZOLAM
     Indication: EPILEPSY
     Route: 065
  7. GABAPENTIN TABLETS [Suspect]
     Active Substance: GABAPENTIN
     Indication: PAROXYSMAL SYMPATHETIC HYPERACTIVITY
     Dosage: 40 MG/KG/DAY (AT 28 DAY OF ILLNESS)
     Route: 065
  8. LAMOTRIGINE TABLETS [Suspect]
     Active Substance: LAMOTRIGINE
     Indication: EPILEPSY
     Dosage: 3.6 MG/KG/DAY
     Route: 048
  9. THIOPENTAL SODIUM. [Suspect]
     Active Substance: THIOPENTAL SODIUM
     Indication: EPILEPSY
     Route: 042
  10. VALPROIC ACID. [Suspect]
     Active Substance: VALPROIC ACID
     Indication: EPILEPSY
     Dosage: 16 MG/KG/DAY
     Route: 048
  11. TIZANIDINE. [Concomitant]
     Active Substance: TIZANIDINE
     Indication: EPILEPSY
     Route: 065
  12. PHENOBARBITAL. [Suspect]
     Active Substance: PHENOBARBITAL
     Indication: EPILEPSY
     Dosage: 10 MG/KG/DAY
     Route: 048

REACTIONS (3)
  - Hyperammonaemia [Recovered/Resolved]
  - Drug-induced liver injury [Recovering/Resolving]
  - Drug interaction [Recovered/Resolved]
